FAERS Safety Report 19637062 (Version 1)
Quarter: 2021Q3

REPORT INFORMATION
  Report Type: Report from Study
  Country: CN (occurrence: CN)
  Receive Date: 20210730
  Receipt Date: 20210730
  Transmission Date: 20211014
  Serious: Yes (Hospitalization)
  Sender: FDA-Public Use
  Company Number: NVSC2021CN164648

PATIENT
  Age: 45 Year
  Sex: Female
  Weight: 43 kg

DRUGS (2)
  1. CAPECITABINE. [Suspect]
     Active Substance: CAPECITABINE
     Indication: BREAST CANCER
     Dosage: (2 TABLETS IN THE MORNING (1000 MG), 3 TABLETS IN THE EVENING(1500 MG))
     Route: 048
     Dates: start: 20210331, end: 20210416
  2. TYKERB [Suspect]
     Active Substance: LAPATINIB DITOSYLATE
     Indication: BREAST CANCER
     Dosage: 1250 MG, QD (5 TABLETS (1250 MG) EACH TIME)
     Route: 048
     Dates: start: 20210331, end: 20210416

REACTIONS (13)
  - Cough [Unknown]
  - Gallbladder disorder [Unknown]
  - Adnexa uteri mass [Unknown]
  - Blood potassium abnormal [Unknown]
  - Abnormal faeces [Unknown]
  - Gallbladder enlargement [Unknown]
  - Blood chloride abnormal [Unknown]
  - Diarrhoea [Recovered/Resolved]
  - Diarrhoea [Recovered/Resolved]
  - Mouth ulceration [Not Recovered/Not Resolved]
  - Blood sodium abnormal [Unknown]
  - Blood calcium abnormal [Unknown]
  - Pyrexia [Recovered/Resolved]

NARRATIVE: CASE EVENT DATE: 20210406
